FAERS Safety Report 6329549-1 (Version None)
Quarter: 2009Q3

REPORT INFORMATION
  Report Type: 
  Country: None (occurrence: None)
  Receive Date: 20090825
  Receipt Date: 20090825
  Transmission Date: 20100115
  Serious: No
  Sender: FDA-Public Use
  Company Number: None

PATIENT
  Age: 66 Year
  Sex: Male
  Weight: 26.3086 kg

DRUGS (2)
  1. CETUXIMAB [Suspect]
     Indication: THROAT CANCER
     Dosage: 680 MG IV  340ML AT 170ML PER HOUR
     Route: 042
  2. DIPHENHYDRAMINE HCL [Concomitant]

REACTIONS (2)
  - HEADACHE [None]
  - NAUSEA [None]
